FAERS Safety Report 7476167-8 (Version None)
Quarter: 2011Q2

REPORT INFORMATION
  Report Type: 
  Country: None (occurrence: None)
  Receive Date: 20110512
  Receipt Date: 20110504
  Transmission Date: 20111010
  Serious: Yes (Hospitalization, Other)
  Sender: FDA-Public Use
  Company Number: US-ASTRAZENECA-2009UW09408

PATIENT
  Age: 543 Month
  Sex: Male
  Weight: 90.7 kg

DRUGS (21)
  1. WARFERIN [Concomitant]
     Indication: COAGULOPATHY
     Dosage: 7.5 FOUR DAYS PER WEEK AND 8.0 THREE DAYS PER WEEK DAILY
  2. GABAPENTIN [Concomitant]
     Indication: DEPRESSION
  3. GABAPENTIN [Concomitant]
     Indication: HEAD INJURY
  4. VISTERIL [Concomitant]
     Indication: ANXIETY
  5. TRAZODONE HCL [Concomitant]
     Indication: SLEEP DISORDER
  6. SYNTHROID [Concomitant]
     Indication: THYROID DISORDER
  7. SEROQUEL [Suspect]
     Indication: TRAUMATIC BRAIN INJURY
     Dosage: UP TO 1600 MG
     Route: 048
     Dates: start: 20030901
  8. PROPRANOLOL [Concomitant]
     Indication: HYPERTENSION
  9. FENALTOIN 3 [Concomitant]
  10. SEROQUEL [Suspect]
     Indication: ANXIETY
     Dosage: UP TO 1600 MG
     Route: 048
     Dates: start: 20030901
  11. SEROQUEL [Suspect]
     Route: 048
  12. THORAZINE [Concomitant]
     Dates: start: 20040101
  13. NUTROPIN HCG [Concomitant]
     Indication: HYPOTHALAMO-PITUITARY DISORDER
  14. SEROQUEL [Suspect]
     Indication: MAJOR DEPRESSION
     Dosage: UP TO 1600 MG
     Route: 048
     Dates: start: 20030901
  15. SEROQUEL [Suspect]
     Indication: DEPRESSION
     Dosage: UP TO 1600 MG
     Route: 048
     Dates: start: 20030901
  16. GEODON [Concomitant]
     Dates: start: 20090101
  17. ANDRUGEL [Concomitant]
     Indication: HYPOTHALAMO-PITUITARY DISORDER
  18. SEROQUEL [Suspect]
     Route: 048
  19. SEROQUEL [Suspect]
     Route: 048
  20. SEROQUEL [Suspect]
     Route: 048
  21. NUVIGIL [Concomitant]
     Indication: AMNESIA

REACTIONS (6)
  - BLOOD TRIGLYCERIDES INCREASED [None]
  - GASTRIC DISORDER [None]
  - OBESITY [None]
  - TYPE 2 DIABETES MELLITUS [None]
  - WEIGHT INCREASED [None]
  - CONVULSION [None]
